FAERS Safety Report 23587245 (Version 2)
Quarter: 2024Q2

REPORT INFORMATION
  Report Type: Spontaneous
  Country: DE (occurrence: None)
  Receive Date: 20240301
  Receipt Date: 20240423
  Transmission Date: 20240716
  Serious: Yes (Hospitalization, Other)
  Sender: FDA-Public Use
  Company Number: 2024A049128

PATIENT
  Age: 78 Year
  Sex: Female

DRUGS (1)
  1. CALQUENCE [Suspect]
     Active Substance: ACALABRUTINIB
     Route: 048
     Dates: start: 20240130

REACTIONS (8)
  - Joint swelling [Unknown]
  - Contusion [Unknown]
  - Pain [Unknown]
  - Condition aggravated [Unknown]
  - White blood cell count increased [Unknown]
  - Full blood count abnormal [Unknown]
  - White blood cell count abnormal [Unknown]
  - Intentional product use issue [Unknown]

NARRATIVE: CASE EVENT DATE: 20240202
